FAERS Safety Report 8325152-2 (Version None)
Quarter: 2012Q2

REPORT INFORMATION
  Report Type: 
  Country: None (occurrence: None)
  Receive Date: 20120501
  Receipt Date: 20120329
  Transmission Date: 20120825
  Serious: No
  Sender: FDA-Public Use
  Company Number: US-ABBOTT-12P-163-0920287-00

PATIENT
  Age: 5 Month
  Sex: Female

DRUGS (2)
  1. CREON [Suspect]
     Indication: CYSTIC FIBROSIS
  2. CREON [Suspect]

REACTIONS (1)
  - INCORRECT DOSE ADMINISTERED [None]
